FAERS Safety Report 17035099 (Version 1)
Quarter: 2019Q4

REPORT INFORMATION
  Report Type: Spontaneous
  Country: CA (occurrence: CA)
  Receive Date: 20191115
  Receipt Date: 20191115
  Transmission Date: 20200122
  Serious: Yes (Life-Threatening, Hospitalization)
  Sender: FDA-Public Use
  Company Number: CA-TEVA-2019-CA-1136329

PATIENT
  Age: 77 Year
  Sex: Male
  Weight: 68 kg

DRUGS (1)
  1. PREDNISONE. [Suspect]
     Active Substance: PREDNISONE
     Indication: MUSCULAR WEAKNESS
     Route: 048

REACTIONS (10)
  - Anxiety [Recovering/Resolving]
  - Muscular weakness [Recovering/Resolving]
  - Delusion [Recovering/Resolving]
  - Substance-induced psychotic disorder [Recovering/Resolving]
  - Catatonia [Recovering/Resolving]
  - Quality of life decreased [Recovering/Resolving]
  - Obsessive-compulsive disorder [Recovering/Resolving]
  - Thinking abnormal [Recovering/Resolving]
  - Weight decreased [Recovering/Resolving]
  - Communication disorder [Recovering/Resolving]
